FAERS Safety Report 13602864 (Version 3)
Quarter: 2017Q2

REPORT INFORMATION
  Report Type: Spontaneous
  Country: US (occurrence: US)
  Receive Date: 20170601
  Receipt Date: 20170629
  Transmission Date: 20170830
  Serious: Yes (Other)
  Sender: FDA-Public Use
  Company Number: US-UNITED THERAPEUTICS-UNT-2017-007891

PATIENT
  Age: 82 Year
  Sex: Female
  Weight: 58.5 kg

DRUGS (2)
  1. ADEMPAS [Concomitant]
     Active Substance: RIOCIGUAT
     Indication: PRODUCT USED FOR UNKNOWN INDICATION
     Dosage: UNK
  2. TYVASO [Suspect]
     Active Substance: TREPROSTINIL
     Indication: PULMONARY HYPERTENSION
     Dosage: 18-54 MICROGRAMS, QID
     Dates: start: 20130918

REACTIONS (7)
  - Loss of consciousness [Unknown]
  - Drug ineffective [Not Recovered/Not Resolved]
  - General physical health deterioration [Not Recovered/Not Resolved]
  - Dementia Alzheimer^s type [Unknown]
  - Weight increased [Unknown]
  - Cardiac valve disease [Unknown]
  - Walking distance test abnormal [Not Recovered/Not Resolved]

NARRATIVE: CASE EVENT DATE: 201612
